FAERS Safety Report 8981945 (Version 1)
Quarter: 2012Q4

REPORT INFORMATION
  Report Type: 
  Country: US (occurrence: US)
  Receive Date: 20121212
  Receipt Date: 20121212
  Transmission Date: 20130627
  Serious: Yes (Death, Hospitalization)
  Sender: FDA-Public Use
  Company Number: US-ASTELLAS-1108168

PATIENT
  Sex: Male

DRUGS (3)
  1. TARCEVA [Suspect]
     Indication: LUNG NEOPLASM MALIGNANT
     Route: 065
     Dates: end: 2002
  2. TARCEVA [Suspect]
     Indication: MALIGNANT RESPIRATORY TRACT NEOPLASM
  3. WARFARIN [Concomitant]

REACTIONS (5)
  - Foot fracture [Unknown]
  - Malignant neoplasm progression [Unknown]
  - Rash [Unknown]
  - Skin ulcer haemorrhage [Unknown]
  - Death [Fatal]
